FAERS Safety Report 20340770 (Version 1)
Quarter: 2022Q1

REPORT INFORMATION
  Report Type: Report from Study
  Country: US (occurrence: US)
  Receive Date: 20220117
  Receipt Date: 20220117
  Transmission Date: 20220423
  Serious: Yes (Other)
  Sender: FDA-Public Use
  Company Number: US-JAZZ-2021-US-024477

PATIENT
  Sex: Female

DRUGS (4)
  1. XYREM [Suspect]
     Active Substance: SODIUM OXYBATE
     Indication: Narcolepsy
     Dosage: 2.25 GRAM, BID
     Route: 048
     Dates: start: 201808, end: 201809
  2. XYREM [Suspect]
     Active Substance: SODIUM OXYBATE
     Dosage: DOASE ADJUSTMENT
     Route: 048
     Dates: start: 201809, end: 201907
  3. XYREM [Suspect]
     Active Substance: SODIUM OXYBATE
     Dosage: 4.5 GRAM BID
     Route: 048
     Dates: start: 201907, end: 202111
  4. TOPIRAMATE [Concomitant]
     Active Substance: TOPIRAMATE
     Indication: Product used for unknown indication
     Dosage: 100 MILLIGRAM
     Dates: start: 20211101

REACTIONS (5)
  - Cholelithiasis [Unknown]
  - Allergy to chemicals [Unknown]
  - Pulmonary mass [Unknown]
  - Hypertension [Unknown]
  - Sleep apnoea syndrome [Unknown]
